FAERS Safety Report 24085843 (Version 2)
Quarter: 2024Q3

REPORT INFORMATION
  Report Type: Spontaneous
  Country: PL (occurrence: None)
  Receive Date: 20240712
  Receipt Date: 20240813
  Transmission Date: 20241017
  Serious: Yes (Death, Other)
  Sender: ASTRAZENECA
  Company Number: 2024A159053

PATIENT
  Age: 52 Year
  Sex: Male

DRUGS (5)
  1. ANDEXXA [Suspect]
     Active Substance: ANDEXANET ALFA
     Indication: Haemorrhagic stroke
     Route: 042
     Dates: start: 20240707
  2. ELIQUIS [Concomitant]
     Active Substance: APIXABAN
  3. EZEHRON [Concomitant]
  4. PERINDOPRIL [Concomitant]
     Active Substance: PERINDOPRIL
  5. METOPROLOL SUCCINATE [Concomitant]
     Active Substance: METOPROLOL SUCCINATE

REACTIONS (2)
  - Death [Fatal]
  - General physical health deterioration [Unknown]
